FAERS Safety Report 19035757 (Version 5)
Quarter: 2021Q2

REPORT INFORMATION
  Report Type: Spontaneous
  Country: US (occurrence: US)
  Receive Date: 20210320
  Receipt Date: 20210602
  Transmission Date: 20210717
  Serious: No
  Sender: FDA-Public Use
  Company Number: US-009507513-2103USA004921

PATIENT
  Age: 92 Year

DRUGS (1)
  1. PROVENTIL [Suspect]
     Active Substance: ALBUTEROL
     Dosage: 2 PUFFS
     Dates: start: 20210314

REACTIONS (4)
  - Poor quality device used [Unknown]
  - No adverse event [Unknown]
  - Device defective [Unknown]
  - Device malfunction [Unknown]

NARRATIVE: CASE EVENT DATE: 20210314
